FAERS Safety Report 9785687 (Version 1)
Quarter: 2013Q4

REPORT INFORMATION
  Report Type: Spontaneous
  Country: US (occurrence: None)
  Receive Date: 20131226
  Receipt Date: 20131226
  Transmission Date: 20140711
  Serious: No
  Sender: FDA-Public Use
  Company Number: None

PATIENT
  Age: 71 Year
  Sex: Male
  Weight: 88.45 kg

DRUGS (15)
  1. XARELTO 10MG JANSSEN [Suspect]
     Indication: THROMBOSIS PROPHYLAXIS
     Dosage: 10MG ?#10?ONE PO PM?2
     Route: 048
     Dates: start: 20111124, end: 20131116
  2. LOSARTIN/HCTZ [Concomitant]
  3. DONTIPRAZIDE [Concomitant]
  4. DOXAZOSIN [Concomitant]
  5. RAPATA [Concomitant]
  6. FERITIBILIC [Concomitant]
  7. METHYLPHENIDATE [Concomitant]
  8. GENNVIE [Concomitant]
  9. CALCIUM [Concomitant]
  10. VIT C [Concomitant]
  11. FISH OIL [Concomitant]
  12. CINMMON [Concomitant]
  13. PROBIOTIC [Concomitant]
  14. MULTI VITAMIN [Concomitant]
  15. V-CSOL [Concomitant]

REACTIONS (3)
  - Hypoaesthesia [None]
  - Paraesthesia [None]
  - Muscular weakness [None]
